FAERS Safety Report 9247567 (Version 1)
Quarter: 2013Q1

REPORT INFORMATION
  Report Type: Spontaneous
  Country: US (occurrence: None)
  Receive Date: 20130305
  Receipt Date: 20130305
  Transmission Date: 20140127
  Serious: Yes (Other)
  Sender: FDA-Public Use
  Company Number: 163-21880-12092436

PATIENT
  Age: 84 Year
  Sex: Female
  Weight: 43.09 kg

DRUGS (1)
  1. REVLIMID [Suspect]
     Indication: MYELODYSPLASTIC SYNDROME
     Dosage: 5 MG, QOD X 21 DAYS, PO
     Dates: start: 20120428

REACTIONS (1)
  - Rash generalised [None]
